FAERS Safety Report 9887496 (Version 1)
Quarter: 2013Q4

REPORT INFORMATION
  Report Type: Spontaneous
  Country: US (occurrence: None)
  Receive Date: 20131223
  Receipt Date: 20131223
  Transmission Date: 20140711
  Serious: Yes (Other)
  Sender: FDA-Public Use
  Company Number: 220734LEO

PATIENT
  Sex: Male

DRUGS (1)
  1. PICATO (0.015 %, GEL) [Suspect]
     Indication: ACTINIC KERATOSIS
     Dosage: 0.5 DF (0.5 DF, 1 IN 1 D)
     Route: 061

REACTIONS (5)
  - Drug ineffective [None]
  - Application site erythema [None]
  - Underdose [None]
  - Drug prescribing error [None]
  - Drug administered at inappropriate site [None]
